APPROVED DRUG PRODUCT: DUTASTERIDE
Active Ingredient: DUTASTERIDE
Strength: 0.5MG
Dosage Form/Route: CAPSULE;ORAL
Application: A090095 | Product #001 | TE Code: AB
Applicant: BARR LABORATORIES INC
Approved: Dec 21, 2010 | RLD: No | RS: No | Type: RX